FAERS Safety Report 5678784-4 (Version None)
Quarter: 2008Q1

REPORT INFORMATION
  Report Type: 
  Country: None (occurrence: None)
  Receive Date: 20080321
  Receipt Date: 20080311
  Transmission Date: 20080703
  Serious: Yes (Hospitalization)
  Sender: FDA-Public Use
  Company Number: 2007-04282

PATIENT
  Age: 86 Year
  Sex: Male
  Weight: 74.4 kg

DRUGS (20)
  1. VELCADE [Suspect]
     Indication: MULTIPLE MYELOMA
     Dosage: 1.30 MG/M2
     Dates: start: 20071003
  2. REVLIMID [Suspect]
     Indication: MULTIPLE MYELOMA
     Dosage: 20.00 MG
     Dates: start: 20071003
  3. DEXAMETHASONE TAB [Suspect]
     Indication: MULTIPLE MYELOMA
     Dosage: 20.00 MG
     Dates: start: 20071003
  4. COUMADIN [Concomitant]
  5. ZOFRAN [Concomitant]
  6. POTASSIUM CHLORIDE [Concomitant]
  7. VITAMIN E [Concomitant]
  8. PROTONIX [Concomitant]
  9. ULTRAM [Concomitant]
  10. COLACE (DOCUSATE SODIUM) [Concomitant]
  11. VITAMIN B12 [Concomitant]
  12. ASCORBIC ACID [Concomitant]
  13. SENNA (SENNA) [Concomitant]
  14. ACYCLOVIR [Concomitant]
  15. PRAVACHOL [Concomitant]
  16. ENSURE (VITAMINS NOS, MINERALS NOS, AMINO ACIDS NOS) [Concomitant]
  17. LOVENOX [Concomitant]
  18. CARDURA [Concomitant]
  19. MYCELEX [Concomitant]
  20. MODURETIC 5-50 [Concomitant]

REACTIONS (11)
  - ALANINE AMINOTRANSFERASE INCREASED [None]
  - ASPARTATE AMINOTRANSFERASE INCREASED [None]
  - ASTHENIA [None]
  - CHONDROCALCINOSIS PYROPHOSPHATE [None]
  - CONSTIPATION [None]
  - DECREASED APPETITE [None]
  - DYSSTASIA [None]
  - FALL [None]
  - HAEMARTHROSIS [None]
  - HAEMATOCHEZIA [None]
  - JOINT SPRAIN [None]
